FAERS Safety Report 6950526-1 (Version None)
Quarter: 2010Q3

REPORT INFORMATION
  Report Type: 
  Country: None (occurrence: None)
  Receive Date: 20100828
  Receipt Date: 20100210
  Transmission Date: 20110219
  Serious: No
  Sender: FDA-Public Use
  Company Number: US-ABBOTT-10P-163-0626137-00

PATIENT
  Sex: Male
  Weight: 62.652 kg

DRUGS (1)
  1. NIASPAN [Suspect]
     Indication: HIGH DENSITY LIPOPROTEIN DECREASED
     Dates: start: 20090901

REACTIONS (6)
  - FLUSHING [None]
  - JOINT SWELLING [None]
  - LIP SWELLING [None]
  - SKIN BURNING SENSATION [None]
  - SKIN WARM [None]
  - SWELLING FACE [None]
